FAERS Safety Report 7311036-5 (Version None)
Quarter: 2011Q1

REPORT INFORMATION
  Report Type: 
  Country: None (occurrence: None)
  Receive Date: 20110210
  Receipt Date: 20110202
  Transmission Date: 20110831
  Serious: Yes (Death)
  Sender: FDA-Public Use
  Company Number: UTC-005060

PATIENT
  Age: 79 Year
  Sex: Female
  Weight: 69.1 kg

DRUGS (3)
  1. LETAIRIS (AMBRISENTAN) [Concomitant]
  2. TYVASO [Suspect]
     Dosage: 216 MCG (54 MCG, 4 IN 1 D), INHALATION
     Route: 055
     Dates: start: 20100707
  3. ADCIRCA [Concomitant]

REACTIONS (1)
  - DEATH [None]
